FAERS Safety Report 8844942 (Version 1)
Quarter: 2012Q4

REPORT INFORMATION
  Report Type: 
  Country: JP (occurrence: JP)
  Receive Date: 20121017
  Receipt Date: 20121017
  Transmission Date: 20130627
  Serious: Yes (Life-Threatening, Hospitalization)
  Sender: FDA-Public Use
  Company Number: PHHY2011JP18702

PATIENT
  Age: 69 Year
  Sex: Male
  Weight: 63 kg

DRUGS (20)
  1. EXFORGE [Suspect]
     Indication: HYPERTENSION
     Dosage: 1 DF, daily
     Route: 048
     Dates: start: 20101221, end: 20110227
  2. DIOVAN [Suspect]
     Indication: HYPERTENSION
     Dosage: 80 mg, UNK
     Route: 048
     Dates: start: 20081208, end: 20090512
  3. PROPOFOL [Suspect]
  4. FENTANYL [Suspect]
     Dosage: 250 ug, UNK
  5. DILTIAZEM HYDROCHLORIDE [Concomitant]
     Indication: HYPERTENSION
     Dosage: 100 mg, UNK
     Route: 048
     Dates: start: 20100512
  6. ADALAT CR [Concomitant]
     Indication: HYPERTENSION
     Dosage: 20 mg, UNK
     Route: 048
     Dates: start: 20040818
  7. ADALAT CR [Concomitant]
     Dosage: 40 mg, UNK
     Route: 048
  8. FERROMIA [Concomitant]
     Dosage: 200 mg, UNK
     Route: 048
  9. PANALDINE [Concomitant]
     Indication: CEREBRAL ARTERY STENOSIS
     Dosage: 200 mg, UNK
     Route: 048
     Dates: start: 20020604
  10. BEZAFIBRATE [Concomitant]
     Indication: HYPERLIPIDAEMIA
     Dosage: 400 mg, UNK
     Route: 048
  11. PONTAL [Concomitant]
     Dosage: 750 mg, UNK
     Route: 048
  12. CINAL [Concomitant]
     Dosage: 3 DF, UNK
     Route: 048
  13. POLYCARBOPHIL CALCIUM [Concomitant]
     Dosage: 1500 mg, UNK
     Route: 048
  14. BIOFERMIN R [Concomitant]
     Dosage: 3 DF, UNK
     Route: 048
  15. FLUTICASONE PROPIONATE W/SALMETEROL XINAFOATE [Concomitant]
     Dosage: 500 ug, UNK
  16. MUCOSTA [Concomitant]
     Dosage: 300 mg, UNK
     Route: 048
  17. HACHIMIJIO-GAN [Concomitant]
     Dosage: 7.5 g, UNK
     Route: 048
  18. OLMETEC [Concomitant]
     Indication: HYPERTENSION
     Dosage: 40 mg, UNK
     Route: 048
     Dates: start: 20090513, end: 20101220
  19. NU-LOTAN [Concomitant]
     Indication: HYPERTENSION
     Dosage: 25 mg, UNK
     Route: 048
     Dates: start: 20060215, end: 20060926
  20. ACECOL [Concomitant]
     Indication: HYPERTENSION
     Dosage: 2 mg, UNK
     Route: 048
     Dates: start: 20031221, end: 20060214

REACTIONS (15)
  - Angioedema [Recovered/Resolved]
  - Pharyngeal oedema [Recovered/Resolved]
  - Oropharyngeal discomfort [Unknown]
  - Eye oedema [Recovered/Resolved]
  - Hypoventilation [Unknown]
  - Oxygen saturation decreased [Unknown]
  - Nasal congestion [Unknown]
  - Oropharyngeal swelling [Unknown]
  - Pharyngeal disorder [Unknown]
  - Dyspnoea [Unknown]
  - Wheezing [Unknown]
  - Obstructive airways disorder [Unknown]
  - Mucosal discolouration [Unknown]
  - Laryngeal oedema [Recovering/Resolving]
  - Myxoedema [Unknown]
